FAERS Safety Report 6602418-5 (Version None)
Quarter: 2010Q1

REPORT INFORMATION
  Report Type: 
  Country: None (occurrence: None)
  Receive Date: 20100225
  Receipt Date: 20100219
  Transmission Date: 20100710
  Serious: Yes (Death, Life-Threatening)
  Sender: FDA-Public Use
  Company Number: US-NOVOPROD-301937

PATIENT
  Sex: Male
  Weight: 80 kg

DRUGS (8)
  1. SIBA FLEXPEN [Suspect]
     Indication: TYPE 2 DIABETES MELLITUS
     Dosage: 98 IU, QD
     Route: 058
     Dates: start: 20090923
  2. NOVORAPID FLEXPEN [Suspect]
     Indication: TYPE 2 DIABETES MELLITUS
     Dosage: 88 IU, QD
     Route: 058
     Dates: start: 20090923
  3. LISINOPRIL [Concomitant]
     Indication: HYPERTENSION
     Dosage: 20/25 MG, QD
     Route: 048
     Dates: start: 20020101
  4. PLAVIX [Concomitant]
     Indication: PERIPHERAL VASCULAR DISORDER
     Dosage: 75 MG, QD
     Route: 048
     Dates: start: 19980101
  5. NITROGLYCERIN [Concomitant]
     Indication: CHEST PAIN
     Dosage: 6.5 MG, QD
     Route: 048
     Dates: start: 19980101
  6. SIMVASTATIN [Concomitant]
     Indication: HYPERLIPIDAEMIA
     Dosage: 20 MG, QD
     Route: 048
     Dates: start: 19980101
  7. METOPROLOL TARTRATE [Concomitant]
     Indication: HYPERTENSION
     Dosage: 25 MG, QD
     Route: 048
     Dates: start: 19980101
  8. ASPIRIN [Concomitant]
     Indication: PROPHYLAXIS
     Dosage: 325 MG, QD
     Dates: start: 19850101

REACTIONS (2)
  - ARTERIOSCLEROSIS [None]
  - HYPERTENSIVE HEART DISEASE [None]
